FAERS Safety Report 5008420-1 (Version None)
Quarter: 2006Q2

REPORT INFORMATION
  Report Type: 
  Country: None (occurrence: None)
  Receive Date: 20060523
  Receipt Date: 20051110
  Transmission Date: 20061013
  Serious: Yes (Other)
  Sender: FDA-Public Use
  Company Number: PHEH2005US12451

PATIENT
  Age: 82 Year
  Sex: Male

DRUGS (2)
  1. DECADRON SRC [Concomitant]
     Indication: MULTIPLE MYELOMA
     Dosage: 40 MG DAILY X 3 WEEKLY X 2 EVERY 4 WEEKS
     Dates: start: 20040801, end: 20050401
  2. ZOMETA [Suspect]
     Indication: MULTIPLE MYELOMA
     Dosage: 4 MG, MONTHLY
     Dates: start: 20040901, end: 20051001

REACTIONS (8)
  - BONE DISORDER [None]
  - DENTAL TREATMENT [None]
  - IMPAIRED HEALING [None]
  - OSTEONECROSIS [None]
  - PAIN IN JAW [None]
  - PATHOLOGICAL FRACTURE [None]
  - PRIMARY SEQUESTRUM [None]
  - PURULENT DISCHARGE [None]
